FAERS Safety Report 7709631-4 (Version None)
Quarter: 2011Q3

REPORT INFORMATION
  Report Type: 
  Country: None (occurrence: None)
  Receive Date: 20110825
  Receipt Date: 20110405
  Transmission Date: 20111222
  Serious: Yes (Hospitalization)
  Sender: FDA-Public Use
  Company Number: US-GLAXOSMITHKLINE-A0922115A

PATIENT
  Age: 52 Year
  Sex: Female

DRUGS (1)
  1. AVANDIA [Suspect]
     Indication: DIABETES MELLITUS
     Dosage: 4MG TWICE PER DAY
     Route: 048

REACTIONS (6)
  - FEMUR FRACTURE [None]
  - IMPLANTABLE DEFIBRILLATOR INSERTION [None]
  - RENAL FAILURE [None]
  - PAIN [None]
  - LOWER LIMB FRACTURE [None]
  - CARDIAC FAILURE CONGESTIVE [None]
